FAERS Safety Report 6787497-7 (Version None)
Quarter: 2010Q2

REPORT INFORMATION
  Report Type: 
  Country: None (occurrence: None)
  Receive Date: 20100621
  Receipt Date: 20080313
  Transmission Date: 20101027
  Serious: Yes (Hospitalization)
  Sender: FDA-Public Use
  Company Number: LEO-2010-00488

PATIENT
  Age: 25 Year
  Sex: Female

DRUGS (1)
  1. INNOHEP [Suspect]
     Indication: EMBOLISM VENOUS
     Dosage: 10000 IU (10000 IU, 1 IN 1 D)
     Dates: start: 20070313, end: 20070506

REACTIONS (3)
  - ANTEPARTUM HAEMORRHAGE [None]
  - DRUG EXPOSURE DURING PREGNANCY [None]
  - THREATENED LABOUR [None]
